FAERS Safety Report 20421792 (Version 2)
Quarter: 2022Q1

REPORT INFORMATION
  Report Type: Spontaneous
  Country: US (occurrence: None)
  Receive Date: 20220203
  Receipt Date: 20220221
  Transmission Date: 20220423
  Serious: No
  Sender: FDA-Public Use
  Company Number: 2022A046967

PATIENT
  Age: 62 Year
  Sex: Male
  Weight: 87 kg

DRUGS (3)
  1. LOKELMA [Suspect]
     Active Substance: SODIUM ZIRCONIUM CYCLOSILICATE
     Indication: Haemodialysis
     Route: 048
     Dates: start: 20211210
  2. LOKELMA [Suspect]
     Active Substance: SODIUM ZIRCONIUM CYCLOSILICATE
     Indication: Haemodialysis
     Route: 048
     Dates: start: 20211210
  3. LOKELMA [Suspect]
     Active Substance: SODIUM ZIRCONIUM CYCLOSILICATE
     Indication: Haemodialysis
     Route: 048

REACTIONS (2)
  - Bipolar disorder [Unknown]
  - Treatment noncompliance [Unknown]
